FAERS Safety Report 4589405-6 (Version None)
Quarter: 2005Q1

REPORT INFORMATION
  Report Type: 
  Country: None (occurrence: None)
  Receive Date: 20050216
  Receipt Date: 20050209
  Transmission Date: 20050727
  Serious: Yes (Death, Hospitalization, Other)
  Sender: FDA-Public Use
  Company Number: 200418399BWH

PATIENT
  Age: 72 Year
  Sex: Male
  Weight: 113.3993 kg

DRUGS (4)
  1. CIPRO [Suspect]
     Dosage: ORAL
     Route: 048
  2. ACTOS [Concomitant]
  3. METFORMIN [Concomitant]
  4. LIPITOR [Concomitant]

REACTIONS (14)
  - ADENOCARCINOMA PANCREAS [None]
  - AORTIC ATHEROSCLEROSIS [None]
  - ARTERIOSCLEROSIS [None]
  - CARDIO-RESPIRATORY ARREST [None]
  - CHOLESTASIS [None]
  - COAGULOPATHY [None]
  - CORONARY ARTERY ATHEROSCLEROSIS [None]
  - FALL [None]
  - HEPATIC FAILURE [None]
  - LOCALISED INFECTION [None]
  - LUNG NEOPLASM [None]
  - METASTASES TO LUNG [None]
  - PNEUMOTHORAX [None]
  - RENAL FAILURE ACUTE [None]
